FAERS Safety Report 4760366-X (Version None)
Quarter: 2005Q3

REPORT INFORMATION
  Report Type: 
  Country: None (occurrence: None)
  Receive Date: 20050826
  Receipt Date: 20050709
  Transmission Date: 20060218
  Serious: No
  Sender: FDA-Public Use
  Company Number: 2005US002589

PATIENT
  Sex: Female

DRUGS (4)
  1. ALOXI [Suspect]
     Indication: PROPHYLAXIS OF NAUSEA AND VOMITING
     Dosage: SINGLE,INTRAVENOUS
     Route: 042
  2. EMEND [Suspect]
     Indication: PROPHYLAXIS OF NAUSEA AND VOMITING
     Dosage: ORAL
     Route: 048
  3. ADRIAMYCIN PFS [Suspect]
     Indication: BREAST CANCER
     Dosage: Q2WK
  4. CYTOXAN [Suspect]
     Indication: BREAST CANCER
     Dosage: Q2WK

REACTIONS (1)
  - HEADACHE [None]
